FAERS Safety Report 18790419 (Version 2)
Quarter: 2021Q2

REPORT INFORMATION
  Report Type: Spontaneous
  Country: JP (occurrence: JP)
  Receive Date: 20210126
  Receipt Date: 20210616
  Transmission Date: 20210717
  Serious: Yes (Hospitalization)
  Sender: FDA-Public Use
  Company Number: JP-KYOWAKIRIN-2021AKK001158

PATIENT

DRUGS (82)
  1. FEBURIC [Concomitant]
     Active Substance: FEBUXOSTAT
     Dosage: 40 MG, QD, AFTER DINNER
     Route: 048
     Dates: start: 20200526, end: 20200529
  2. FEBURIC [Concomitant]
     Active Substance: FEBUXOSTAT
     Dosage: 40 MG, QD, AFTER BREAKFAST
     Route: 048
     Dates: start: 20200530, end: 20200612
  3. DAIPHEN [Concomitant]
     Active Substance: SULFAMETHOXAZOLE\TRIMETHOPRIM
     Dosage: 2 DF, BID, AFTER BREAKFAST AND DINNER ON MONDAY AND THURSDAY
     Route: 048
     Dates: start: 20200713, end: 20200827
  4. PREDONINE [Concomitant]
     Active Substance: PREDNISOLONE
     Dosage: 15 MG, BID, AFTER BREAKFAST AND DINNER
     Route: 048
     Dates: start: 20200706, end: 20200710
  5. PREDONINE [Concomitant]
     Active Substance: PREDNISOLONE
     Dosage: BID, AFTER BREAKFAST AND LUNCH
     Route: 048
     Dates: start: 20201223
  6. AZUNOL [GUAIAZULENE] [Concomitant]
     Active Substance: GUAIAZULENE
     Dosage: UNK, SEVERAL TIMES/DAY
     Route: 061
     Dates: start: 20200708, end: 20200806
  7. KARY UNI [Concomitant]
     Active Substance: PIRENOXINE
     Dosage: UNK, QID
     Route: 047
     Dates: start: 20200520, end: 20200617
  8. TAKECAB [Concomitant]
     Active Substance: VONOPRAZAN FUMARATE
     Dosage: 20 MG, QD, AFTER DINNER
     Route: 048
     Dates: start: 20200526, end: 20200529
  9. LEVOFLOXACIN HEMIHYDRATE [Concomitant]
     Active Substance: LEVOFLOXACIN
     Dosage: 500 MG, QD, AFTER DINNER
     Route: 048
     Dates: start: 20200526, end: 20200529
  10. XYLOCAINE [Concomitant]
     Active Substance: LIDOCAINE HYDROCHLORIDE
     Dosage: UNK
     Route: 065
     Dates: start: 20200604, end: 20200604
  11. AZUNOL [GUAIAZULENE] [Concomitant]
     Active Substance: GUAIAZULENE
     Dosage: UNK, SEVERAL TIMES/DAY
     Route: 061
     Dates: start: 20200531, end: 20200623
  12. POLAPREZINC [Concomitant]
     Active Substance: POLAPREZINC
     Dosage: UNK UNK, QID, BEFORE EVERY MEAL AND BED TIME
     Route: 048
     Dates: start: 20200610, end: 20200614
  13. SODIUM ALGINATE [Concomitant]
     Active Substance: SODIUM ALGINATE
     Dosage: UNK UNK, BID
     Route: 048
     Dates: start: 20200601, end: 20200601
  14. SODIUM ALGINATE [Concomitant]
     Active Substance: SODIUM ALGINATE
     Dosage: UNK UNK, QID, BEFORE EVERY MEAL AND BED TIME
     Route: 048
     Dates: start: 20200602, end: 20200605
  15. METHYCOBAL [Concomitant]
     Active Substance: METHYLCOBALAMIN
     Dosage: 500 UG, TID, AFTER EVERY MEAL
     Route: 048
     Dates: start: 20200607, end: 20200612
  16. CERNILTON [HERBAL POLLEN NOS] [Concomitant]
     Dosage: 2 DF, BID, AFTER BREAKFAST AND DINNER
     Route: 048
     Dates: start: 20200520, end: 20200621
  17. KARY UNI [Concomitant]
     Active Substance: PIRENOXINE
     Dosage: UNK, QID
     Route: 047
     Dates: start: 20200626, end: 20200926
  18. PREDONINE [Concomitant]
     Active Substance: PREDNISOLONE
     Dosage: 15 MG, BID, AFTER BREAKFAST AND LUNCH
     Route: 048
     Dates: start: 20200726, end: 20200730
  19. PREDONINE [Concomitant]
     Active Substance: PREDNISOLONE
     Dosage: 10 MG, BID, AFTER BREAKFAST AND LUNCH
     Route: 048
     Dates: start: 20200731, end: 20200807
  20. PREDONINE [Concomitant]
     Active Substance: PREDNISOLONE
     Dosage: BID, AFTER BREAKFAST AND LUNCH
     Route: 048
     Dates: start: 20200808, end: 20200814
  21. AZUNOL [SODIUM GUALENATE] [Concomitant]
     Active Substance: SODIUM GUALENATE
     Dosage: UNK, SEVERAL TIMES/DAY
     Route: 048
     Dates: start: 20200708, end: 20200806
  22. AZUNOL [GUAIAZULENE] [Concomitant]
     Active Substance: GUAIAZULENE
     Dosage: UNK, SEVERAL TIMES/DAY
     Route: 061
     Dates: start: 20200626, end: 20200629
  23. AZUNOL [GUAIAZULENE] [Concomitant]
     Active Substance: GUAIAZULENE
     Dosage: UNK UNK, TID
     Route: 061
     Dates: start: 20201002, end: 20201018
  24. POLAPREZINC [Concomitant]
     Active Substance: POLAPREZINC
     Dosage: UNK UNK, QID, BEFORE EVERY MEAL AND BEDTIME
     Route: 048
     Dates: start: 20200602, end: 20200605
  25. CERNILTON [HERBAL POLLEN NOS] [Concomitant]
     Dosage: 2 DF, BID, AFTER BREAKFAST AND DINNER
     Route: 048
     Dates: start: 20200626, end: 20201016
  26. CERNILTON [HERBAL POLLEN NOS] [Concomitant]
     Dosage: 126 MG, BID, AFTER BREAKFAST AND DINNER
     Route: 048
     Dates: start: 20201125
  27. TAMSULOSIN HYDROCHLORIDE OD [Concomitant]
     Active Substance: TAMSULOSIN HYDROCHLORIDE
     Dosage: 0.2 MG, QD, AFTER BREAKFAST
     Route: 048
     Dates: start: 20200520, end: 20200621
  28. DIFLUCAN [Concomitant]
     Active Substance: FLUCONAZOLE
     Dosage: 100 MG, QD, AFTER DINNER
     Route: 048
     Dates: start: 20200526, end: 20200529
  29. ACETAMINOPHEN. [Concomitant]
     Active Substance: ACETAMINOPHEN
     Dosage: 400 MG, QD
     Route: 048
     Dates: start: 20200609, end: 20200609
  30. PREDONINE [Concomitant]
     Active Substance: PREDNISOLONE
     Dosage: 30 MG, BID, AFTER BREAKFAST AND LUNCH
     Route: 048
     Dates: start: 20200826, end: 20200827
  31. PREDONINE [Concomitant]
     Active Substance: PREDNISOLONE
     Dosage: 15 MG, BID, AFTER BREAKFAST AND LUNCH
     Route: 048
     Dates: start: 20201111
  32. PREDONINE [Concomitant]
     Active Substance: PREDNISOLONE
     Dosage: BID, AFTER BREAKFAST AND LUNCH
     Route: 048
     Dates: start: 20201209
  33. PREDONINE [Concomitant]
     Active Substance: PREDNISOLONE
     Dosage: 10 MG, BID, AFTER BREAKFAST AND LUNCH
     Route: 048
     Dates: start: 20210224
  34. AZUNOL [SODIUM GUALENATE] [Concomitant]
     Active Substance: SODIUM GUALENATE
     Dosage: UNK, SEVERAL TIMES/DAY
     Route: 048
     Dates: start: 20200531, end: 20200623
  35. AZUNOL [SODIUM GUALENATE] [Concomitant]
     Active Substance: SODIUM GUALENATE
     Dosage: UNK, SEVERAL TIMES/DAY
     Route: 048
     Dates: start: 20200626, end: 20200705
  36. XYLOCAINE [Concomitant]
     Active Substance: LIDOCAINE HYDROCHLORIDE
     Dosage: UNK
     Route: 065
     Dates: start: 20200702, end: 20200702
  37. XYLOCAINE [Concomitant]
     Active Substance: LIDOCAINE HYDROCHLORIDE
     Dosage: UNK
     Route: 065
     Dates: start: 20200705, end: 20200705
  38. SODIUM ALGINATE [Concomitant]
     Active Substance: SODIUM ALGINATE
     Dosage: UNK UNK, QD
     Route: 048
     Dates: start: 20200606, end: 20200606
  39. PREDONINE [Concomitant]
     Active Substance: PREDNISOLONE
     Dosage: 30 MG, BID, AFTER BREAKFAST AND LUNCH
     Route: 048
     Dates: start: 20200912, end: 20200923
  40. PREDONINE [Concomitant]
     Active Substance: PREDNISOLONE
     Dosage: BID, AFTER BREAKFAST AND LUNCH
     Route: 048
     Dates: start: 20210106
  41. AZUNOL [GUAIAZULENE] [Concomitant]
     Active Substance: GUAIAZULENE
     Dosage: UNK, SEVERAL TIMES/DAY
     Route: 061
     Dates: start: 20200916, end: 20200923
  42. TAMSULOSIN HYDROCHLORIDE OD [Concomitant]
     Active Substance: TAMSULOSIN HYDROCHLORIDE
     Dosage: 0.2 MG, QD, AFTER BREAKFAST
     Route: 048
     Dates: start: 20200626, end: 20201016
  43. KARY UNI [Concomitant]
     Active Substance: PIRENOXINE
     Dosage: UNK, QID
     Route: 047
     Dates: start: 20201125
  44. LATANOPROST. [Concomitant]
     Active Substance: LATANOPROST
     Dosage: UNK UNK, QD, IN THE EVENING
     Route: 047
     Dates: start: 20200626, end: 20200724
  45. TAKECAB [Concomitant]
     Active Substance: VONOPRAZAN FUMARATE
     Dosage: 20 MG, QD, AFTER BREAKFAST
     Route: 048
     Dates: start: 20200530, end: 20200612
  46. VICCLOX [ACICLOVIR] [Concomitant]
     Active Substance: ACYCLOVIR
     Dosage: 1 DF, QD,AFTER DINNER
     Route: 048
     Dates: start: 20200526, end: 20200529
  47. VICCLOX [ACICLOVIR] [Concomitant]
     Active Substance: ACYCLOVIR
     Dosage: 1 DF, QD, AFTER BREAKFAST
     Route: 048
     Dates: start: 20200530, end: 20200612
  48. LEVOFLOXACIN HEMIHYDRATE [Concomitant]
     Active Substance: LEVOFLOXACIN
     Dosage: 500 MG, QD, AFTER BREAKFAST
     Route: 048
     Dates: start: 20200530, end: 20200612
  49. DAIPHEN [Concomitant]
     Active Substance: SULFAMETHOXAZOLE\TRIMETHOPRIM
     Dosage: 1 DF, QD, AFTER DINNER
     Route: 048
     Dates: start: 20200526, end: 20200529
  50. ACETAMINOPHEN. [Concomitant]
     Active Substance: ACETAMINOPHEN
     Dosage: 400 MG, QD
     Route: 048
     Dates: start: 20200601, end: 20200601
  51. PREDONINE [Concomitant]
     Active Substance: PREDNISOLONE
     Dosage: BID, AFTER BREAKFAST AND LUNCH
     Route: 048
     Dates: start: 20200610, end: 20200614
  52. PREDONINE [Concomitant]
     Active Substance: PREDNISOLONE
     Dosage: 30 MG, QD, AFTER DINNER
     Route: 048
     Dates: start: 20200626, end: 20200626
  53. PREDONINE [Concomitant]
     Active Substance: PREDNISOLONE
     Dosage: 15 MG, BID, AFTER BREAKFAST AND DINNER
     Route: 048
     Dates: start: 20200627, end: 20200703
  54. PREDONINE [Concomitant]
     Active Substance: PREDNISOLONE
     Dosage: BID, AFTER BREAKFAST AND LUNCH
     Route: 048
     Dates: start: 20201028
  55. PREDONINE [Concomitant]
     Active Substance: PREDNISOLONE
     Dosage: 10 MG, BID, AFTER BREAKFAST AND LUNCH
     Route: 048
     Dates: start: 20210127
  56. POLAPREZINC [Concomitant]
     Active Substance: POLAPREZINC
     Dosage: UNK UNK, BID, BEFORE DINNER AND BEDTIME
     Route: 048
     Dates: start: 20200601, end: 20200601
  57. METHYCOBAL [Concomitant]
     Active Substance: METHYLCOBALAMIN
     Dosage: 500 UG, TID, AFTER EVERY MEAL
     Route: 048
     Dates: start: 20200626, end: 20201016
  58. POTELIGEO [Suspect]
     Active Substance: MOGAMULIZUMAB-KPKC
     Indication: ADULT T-CELL LYMPHOMA/LEUKAEMIA
     Dosage: UNK
     Route: 041
  59. TAMSULOSIN HYDROCHLORIDE OD [Concomitant]
     Active Substance: TAMSULOSIN HYDROCHLORIDE
     Dosage: 0.2 MG, QD, AFTER BREAKFAST
     Route: 048
     Dates: start: 20201125
  60. DIFLUCAN [Concomitant]
     Active Substance: FLUCONAZOLE
     Dosage: 100 MG, QD, AFTER BREAKFAST
     Route: 048
     Dates: start: 20200530, end: 20200612
  61. PREDONINE [Concomitant]
     Active Substance: PREDNISOLONE
     Dosage: QD, AFTER BREAKFAST AND DINNER
     Route: 048
     Dates: start: 20200527, end: 20200531
  62. PREDONINE [Concomitant]
     Active Substance: PREDNISOLONE
     Dosage: 10 MG, TID, AFTER BREAKFAST, LUNCH AND DINNER
     Route: 048
     Dates: start: 20200705, end: 20200705
  63. PREDONINE [Concomitant]
     Active Substance: PREDNISOLONE
     Dosage: 25 MG, BID, AFTER BREAKFAST AND LUNCH
     Route: 048
     Dates: start: 20200716, end: 20200720
  64. PREDONINE [Concomitant]
     Active Substance: PREDNISOLONE
     Dosage: 20 MG, BID, AFTER BREAKFAST AND LUNCH
     Route: 048
     Dates: start: 20200721, end: 20200725
  65. PREDONINE [Concomitant]
     Active Substance: PREDNISOLONE
     Dosage: 10 MG, QD, AFTER BREAKFAST
     Route: 048
     Dates: start: 20200815, end: 20200821
  66. PREDONINE [Concomitant]
     Active Substance: PREDNISOLONE
     Dosage: 10 MG, BID, AFTER BREAKFAST AND LUNCH
     Route: 048
     Dates: start: 20200822, end: 20200825
  67. PREDONINE [Concomitant]
     Active Substance: PREDNISOLONE
     Dosage: 30 MG, BID, AFTER BREAKFAST AND LUNCH
     Route: 048
     Dates: start: 20200831, end: 20200908
  68. PREDONINE [Concomitant]
     Active Substance: PREDNISOLONE
     Dosage: 25 MG, BID, AFTER BREAKFAST AND LUNCH
     Route: 048
     Dates: start: 20200924, end: 20201007
  69. PREDONINE [Concomitant]
     Active Substance: PREDNISOLONE
     Dosage: 20 MG, BID, AFTER BREAKFAST AND LUNCH
     Route: 048
     Dates: start: 20201008, end: 20201016
  70. METHYCOBAL [Concomitant]
     Active Substance: METHYLCOBALAMIN
     Dosage: 500 UG, TID, AFTER EVERY MEAL
     Route: 048
     Dates: start: 20201125
  71. HYALONSAN [Concomitant]
     Active Substance: HYALURONATE SODIUM
     Dosage: UNK, MORE THAN 4 TIMES/DAY
     Route: 047
     Dates: start: 20200520, end: 20200617
  72. HYALONSAN [Concomitant]
     Active Substance: HYALURONATE SODIUM
     Dosage: UNK, MORE THAN 4 TIMES/DAY
     Route: 047
     Dates: start: 20200626, end: 20200724
  73. KARY UNI [Concomitant]
     Active Substance: PIRENOXINE
     Dosage: UNK, QID
     Route: 047
     Dates: start: 20201001, end: 20201018
  74. LATANOPROST. [Concomitant]
     Active Substance: LATANOPROST
     Dosage: UNK UNK, QD, IN THE EVENING
     Route: 047
     Dates: start: 20200520, end: 20200617
  75. DAIPHEN [Concomitant]
     Active Substance: SULFAMETHOXAZOLE\TRIMETHOPRIM
     Dosage: 1 DF, QD, AFTER BREAKFAST
     Route: 048
     Dates: start: 20200530, end: 20200612
  76. PREDONINE [Concomitant]
     Active Substance: PREDNISOLONE
     Dosage: 10 MG, BID, AFTER BREAKFAST AND DINNER
     Route: 048
     Dates: start: 20200704, end: 20200704
  77. PREDONINE [Concomitant]
     Active Substance: PREDNISOLONE
     Dosage: 30 MG, BID, AFTER BREAKFAST AND LUNCH
     Route: 048
     Dates: start: 20200711, end: 20200715
  78. PREDONINE [Concomitant]
     Active Substance: PREDNISOLONE
     Dosage: BID, AFTER BREAKFAST AND LUNCH
     Route: 048
     Dates: start: 20201125
  79. XYLOCAINE [Concomitant]
     Active Substance: LIDOCAINE HYDROCHLORIDE
     Dosage: UNK
     Route: 065
     Dates: start: 20200601, end: 20200601
  80. XYLOCAINE [Concomitant]
     Active Substance: LIDOCAINE HYDROCHLORIDE
     Dosage: UNK
     Route: 065
     Dates: start: 20200610, end: 20200610
  81. POLAPREZINC [Concomitant]
     Active Substance: POLAPREZINC
     Dosage: UNK UNK, QD, BEFORE BREAKFAST
     Route: 048
     Dates: start: 20200606, end: 20200606
  82. SODIUM ALGINATE [Concomitant]
     Active Substance: SODIUM ALGINATE
     Dosage: UNK UNK, QID, BEFORE EVERY MEAL AND BED TIME
     Route: 048
     Dates: start: 20200610, end: 20200614

REACTIONS (1)
  - Skin disorder [Recovering/Resolving]

NARRATIVE: CASE EVENT DATE: 20200611
